FAERS Safety Report 7933501-X (Version None)
Quarter: 2011Q4

REPORT INFORMATION
  Report Type: 
  Country: None (occurrence: None)
  Receive Date: 20111122
  Receipt Date: 20110930
  Transmission Date: 20120403
  Serious: No
  Sender: FDA-Public Use
  Company Number: US-BAYER-2011-047463

PATIENT
  Age: 73 Year
  Sex: Male
  Weight: 85 kg

DRUGS (2)
  1. HYDROCHLOROTHIAZIDE [Concomitant]
  2. ALEVE (CAPLET) [Suspect]
     Indication: MUSCLE STRAIN
     Dosage: 2 TABLETS TWICE DAILY - 100 COUNT
     Route: 048

REACTIONS (1)
  - MUSCLE STRAIN [None]
